FAERS Safety Report 19236254 (Version 1)
Quarter: 2021Q2

REPORT INFORMATION
  Report Type: Report from Study
  Country: RU (occurrence: RU)
  Receive Date: 20210510
  Receipt Date: 20210510
  Transmission Date: 20210717
  Serious: Yes (Hospitalization)
  Sender: FDA-Public Use
  Company Number: RU-JNJFOC-20210510204

PATIENT
  Age: 56 Year
  Sex: Male

DRUGS (6)
  1. AZILSARTAN MEDOXOMIL;CHLORTALIDONE [Concomitant]
     Dosage: 65 MG, QD
     Dates: start: 20181101
  2. XARELTO [Suspect]
     Active Substance: RIVAROXABAN
     Indication: CARDIOVASCULAR EVENT PROPHYLAXIS
     Route: 048
  3. XARELTO [Suspect]
     Active Substance: RIVAROXABAN
     Indication: PERIPHERAL ARTERIAL OCCLUSIVE DISEASE
     Route: 048
  4. ROSUVASTATIN. [Concomitant]
     Active Substance: ROSUVASTATIN
     Dosage: 25 MG, QD
     Dates: start: 20181101
  5. ACETYLSALICYLIC ACID [Suspect]
     Active Substance: ASPIRIN
     Indication: CORONARY ARTERY DISEASE
     Dosage: 75 MG, QD
     Dates: start: 20191125
  6. XARELTO [Suspect]
     Active Substance: RIVAROXABAN
     Indication: CORONARY ARTERY DISEASE
     Dosage: 2.5 MG, BID
     Route: 048
     Dates: start: 20191125, end: 20201003

REACTIONS (1)
  - Peripheral ischaemia [Recovered/Resolved]

NARRATIVE: CASE EVENT DATE: 20201001
